FAERS Safety Report 7030012-3 (Version None)
Quarter: 2010Q4

REPORT INFORMATION
  Report Type: 
  Country: None (occurrence: None)
  Receive Date: 20101006
  Receipt Date: 20100924
  Transmission Date: 20110411
  Serious: Yes (Other)
  Sender: FDA-Public Use
  Company Number: PHHY2010US51515

PATIENT
  Sex: Female
  Weight: 91 kg

DRUGS (14)
  1. VALTURNA [Suspect]
     Indication: HYPERTENSION
     Dosage: 300/320 MG DAILY
     Route: 048
     Dates: start: 20100722
  2. AMLODIPINE [Concomitant]
  3. FEXOFENADINE HCL [Concomitant]
  4. OMEPRAZOLE [Concomitant]
  5. SERTRALINE HYDROCHLORIDE [Concomitant]
  6. ASPIRIN [Concomitant]
  7. VITAMIN B-12 [Concomitant]
  8. CHLOROQUINE HYDROCHLORIDE [Concomitant]
  9. POTASSIUM [Concomitant]
  10. LEVOTHROID [Concomitant]
  11. METFORMIN [Concomitant]
  12. SALICYLATES [Concomitant]
  13. FUROSEMIDE [Concomitant]
  14. VICTOZA [Concomitant]
     Indication: DIABETES MELLITUS

REACTIONS (5)
  - ALANINE AMINOTRANSFERASE INCREASED [None]
  - ASPARTATE AMINOTRANSFERASE INCREASED [None]
  - BILIRUBIN CONJUGATED INCREASED [None]
  - LIPASE INCREASED [None]
  - PANCREATIC MASS [None]
